FAERS Safety Report 12750474 (Version 1)
Quarter: 2016Q3

REPORT INFORMATION
  Report Type: Report from Study
  Country: US (occurrence: US)
  Receive Date: 20160916
  Receipt Date: 20160916
  Transmission Date: 20161109
  Serious: No
  Sender: FDA-Public Use
  Company Number: US-AMGEN-USASL2016120927

PATIENT
  Age: 66 Year
  Sex: Female

DRUGS (7)
  1. METFORMIN [Suspect]
     Active Substance: METFORMIN HYDROCHLORIDE
     Indication: PRODUCT USED FOR UNKNOWN INDICATION
     Dosage: UNK
     Route: 065
     Dates: end: 2016
  2. GLIMEPIRIDE. [Suspect]
     Active Substance: GLIMEPIRIDE
     Indication: PRODUCT USED FOR UNKNOWN INDICATION
     Dosage: 1 MG, QD
     Route: 065
     Dates: start: 20160904
  3. ENBREL [Suspect]
     Active Substance: ETANERCEPT
     Indication: RHEUMATOID ARTHRITIS
     Dosage: 50 MG, QWK
     Route: 065
     Dates: start: 2016
  4. TERBINAFINE. [Suspect]
     Active Substance: TERBINAFINE
     Indication: ONYCHOMYCOSIS
     Dosage: 250 MG, QD
     Route: 065
     Dates: start: 201608, end: 2016
  5. AMLODIPINE [Concomitant]
     Active Substance: AMLODIPINE BESYLATE
     Dosage: 5 MG, QD
  6. LEFLUNOMIDE. [Suspect]
     Active Substance: LEFLUNOMIDE
     Indication: PRODUCT USED FOR UNKNOWN INDICATION
     Dosage: 20 MG, QD
     Route: 065
     Dates: start: 2016, end: 2016
  7. PREDNISONE. [Concomitant]
     Active Substance: PREDNISONE
     Dosage: 9 MG, QD

REACTIONS (11)
  - Hepatic enzyme increased [Unknown]
  - Blood pressure increased [Unknown]
  - Injection site extravasation [Unknown]
  - Onychomycosis [Unknown]
  - Abdominal discomfort [Unknown]
  - Injection site pain [Unknown]
  - Injection site paraesthesia [Unknown]
  - Injection site haemorrhage [Unknown]
  - Drug ineffective [Unknown]
  - Blood glucose abnormal [Recovering/Resolving]
  - Nervousness [Recovering/Resolving]

NARRATIVE: CASE EVENT DATE: 2016
